FAERS Safety Report 5328365-7 (Version None)
Quarter: 2007Q2

REPORT INFORMATION
  Report Type: 
  Country: None (occurrence: None)
  Receive Date: 20070515
  Receipt Date: 20070515
  Transmission Date: 20071010
  Serious: Yes (Hospitalization)
  Sender: FDA-Public Use
  Company Number: None

PATIENT
  Sex: Female

DRUGS (1)
  1. PIPERACILLIN AND TAZOBACTAM [Suspect]
     Indication: PNEUMONIA
     Dosage: PIP/TAZO 3.375 GM EVERY 6 HOURS IV
     Route: 042
     Dates: start: 20070105, end: 20070109

REACTIONS (1)
  - HAEMORRHAGE INTRACRANIAL [None]
